FAERS Safety Report 19746560 (Version 2)
Quarter: 2021Q3

REPORT INFORMATION
  Report Type: Spontaneous
  Country: US (occurrence: US)
  Receive Date: 20210825
  Receipt Date: 20210910
  Transmission Date: 20211014
  Serious: Yes (Hospitalization, Other)
  Sender: FDA-Public Use
  Company Number: US-PFIZER INC-202101047856

PATIENT
  Age: 54 Year
  Sex: Female
  Weight: 103.86 kg

DRUGS (4)
  1. CHANTIX [Suspect]
     Active Substance: VARENICLINE TARTRATE
     Dosage: 1 MG (1 MG X 42 TABLETS, 1MG X 56 TABLETS)
  2. CHANTIX [Suspect]
     Active Substance: VARENICLINE TARTRATE
     Dosage: 0.5 MG (0.5 MG X 11 TABLETS)
     Dates: start: 20210718
  3. CHANTIX [Suspect]
     Active Substance: VARENICLINE TARTRATE
     Indication: SMOKING CESSATION THERAPY
     Dosage: 1 DF, 1X/DAY (ONE FOR THREE DAYS)
     Dates: start: 20210618, end: 20210620
  4. CHANTIX [Suspect]
     Active Substance: VARENICLINE TARTRATE
     Dosage: 1 DF, 2X/DAY (THEN TWO TABLETS ONE IN MORNING AND ONE IN EVENING)
     Dates: start: 2021, end: 20210811

REACTIONS (11)
  - Weight increased [Not Recovered/Not Resolved]
  - Recalled product administered [Unknown]
  - Joint swelling [Recovering/Resolving]
  - Dyspnoea [Not Recovered/Not Resolved]
  - Insomnia [Unknown]
  - Dry mouth [Unknown]
  - Respiratory disorder [Not Recovered/Not Resolved]
  - Joint swelling [Recovered/Resolved]
  - Peripheral swelling [Not Recovered/Not Resolved]
  - Hypoacusis [Unknown]
  - Abnormal dreams [Unknown]

NARRATIVE: CASE EVENT DATE: 20210618
